FAERS Safety Report 10899363 (Version 1)
Quarter: 2015Q1

REPORT INFORMATION
  Report Type: Report from Study
  Country: CO (occurrence: CO)
  Receive Date: 20150309
  Receipt Date: 20150309
  Transmission Date: 20150721
  Serious: Yes (Death)
  Sender: FDA-Public Use
  Company Number: US-ASTRAZENECA-2015SE20971

PATIENT
  Age: 72 Day
  Sex: Female
  Weight: 2.9 kg

DRUGS (1)
  1. SYNAGIS [Suspect]
     Active Substance: PALIVIZUMAB
     Indication: PREMATURE BABY
     Route: 030
     Dates: start: 20150121, end: 20150121

REACTIONS (1)
  - Death [Fatal]

NARRATIVE: CASE EVENT DATE: 20150227
